FAERS Safety Report 6915800-3 (Version None)
Quarter: 2010Q3

REPORT INFORMATION
  Report Type: 
  Country: None (occurrence: None)
  Receive Date: 20100810
  Receipt Date: 20100428
  Transmission Date: 20110219
  Serious: No
  Sender: FDA-Public Use
  Company Number: A0851710A

PATIENT

DRUGS (1)
  1. PAXIL [Suspect]
     Indication: DEPRESSION

REACTIONS (3)
  - DRUG EXPOSURE DURING PREGNANCY [None]
  - LUNG DISORDER [None]
  - RESPIRATORY SYNCYTIAL VIRUS INFECTION [None]
